FAERS Safety Report 9776529 (Version 3)
Quarter: 2014Q1

REPORT INFORMATION
  Report Type: Spontaneous
  Country: US (occurrence: US)
  Receive Date: 20131220
  Receipt Date: 20140127
  Transmission Date: 20141002
  Serious: No
  Sender: FDA-Public Use
  Company Number: US-GILEAD-2013-0090473

PATIENT
  Sex: Female

DRUGS (5)
  1. LETAIRIS [Suspect]
     Indication: PULMONARY ARTERIAL HYPERTENSION
     Dosage: 10 MG, QD
     Dates: start: 20070817
  2. LETAIRIS [Suspect]
     Indication: SCLERODERMA
  3. COUMADIN                           /00014802/ [Concomitant]
  4. TYVASO [Concomitant]
  5. REVATIO [Concomitant]

REACTIONS (8)
  - Throat tightness [Unknown]
  - Chest discomfort [Unknown]
  - Ear discomfort [Unknown]
  - Ear congestion [Unknown]
  - Respiratory tract congestion [Unknown]
  - Nasal congestion [Unknown]
  - Upper respiratory tract congestion [Unknown]
  - Fatigue [Unknown]
